FAERS Safety Report 7063339-X (Version None)
Quarter: 2010Q4

REPORT INFORMATION
  Report Type: 
  Country: None (occurrence: None)
  Receive Date: 20101026
  Receipt Date: 20091119
  Transmission Date: 20110411
  Serious: No
  Sender: FDA-Public Use
  Company Number: US-ABBOTT-09P-163-0610892-00

PATIENT
  Sex: Female
  Weight: 99.88 kg

DRUGS (2)
  1. LUPRON DEPOT [Suspect]
     Indication: ENDOMETRIOSIS
     Dosage: MONTHLY FOR THREE MONTHS
     Route: 050
     Dates: start: 20091027
  2. DIFLUCAN [Concomitant]
     Indication: FUNGAL INFECTION

REACTIONS (3)
  - CANDIDIASIS [None]
  - HEADACHE [None]
  - VISION BLURRED [None]
